FAERS Safety Report 4432664-0 (Version None)
Quarter: 2004Q3

REPORT INFORMATION
  Report Type: 
  Country: None (occurrence: None)
  Receive Date: 20040820
  Receipt Date: 20040802
  Transmission Date: 20050211
  Serious: No
  Sender: FDA-Public Use
  Company Number: USA040773134

PATIENT
  Age: 42 Year
  Sex: Female
  Weight: 73 kg

DRUGS (7)
  1. ZYPREXA [Suspect]
     Indication: MAJOR DEPRESSION
     Dosage: 10 MG/1 AT BEDTIME
     Dates: start: 20020701
  2. LORAZEPAM [Concomitant]
  3. GEODON [Concomitant]
  4. PAROXETINE HCL [Concomitant]
  5. PREMARIN [Concomitant]
  6. PRENATAL VITAMINS [Concomitant]
  7. COLACE (DOCUSATE SODIUM) [Concomitant]

REACTIONS (1)
  - RETINAL HAEMORRHAGE [None]
